FAERS Safety Report 4677212-5 (Version None)
Quarter: 2005Q2

REPORT INFORMATION
  Report Type: 
  Country: None (occurrence: None)
  Receive Date: 20050526
  Receipt Date: 20050517
  Transmission Date: 20051028
  Serious: Yes (Death, Hospitalization)
  Sender: FDA-Public Use
  Company Number: 2005017121

PATIENT
  Age: 74 Year
  Sex: Male

DRUGS (12)
  1. SOLU-MEDROL [Suspect]
     Indication: ASTHMA
     Dosage: UNK (UNKNOWN), INTRAVENOUS
     Route: 042
  2. RHEUMATREX [Concomitant]
  3. TAKEPRON (LANSOPRAZOLE) [Concomitant]
  4. ALFAROL (ALFACALCIDOL) [Concomitant]
  5. DIOVANE (VALSARTAN) [Concomitant]
  6. NORVASC [Concomitant]
  7. MUCOSTA (REBAMIPIDE) [Concomitant]
  8. PREDONINE (PREDNISOLONE) [Concomitant]
  9. ATROVENT [Concomitant]
  10. FAMOTIDINE [Concomitant]
  11. AMINOPHYLLIN [Concomitant]
  12. LASIX [Concomitant]

REACTIONS (2)
  - PLATELET COUNT DECREASED [None]
  - WHITE BLOOD CELL COUNT DECREASED [None]
